FAERS Safety Report 10248781 (Version 1)
Quarter: 2014Q2

REPORT INFORMATION
  Report Type: Spontaneous
  Country: GB (occurrence: None)
  Receive Date: 20140618
  Receipt Date: 20140618
  Transmission Date: 20141212
  Serious: Yes (Life-Threatening, Hospitalization, Disabling)
  Sender: FDA-Public Use
  Company Number: B1000196A

PATIENT
  Age: 32 Year
  Sex: Male
  Weight: 74.66 kg

DRUGS (5)
  1. PAROXETINE HYDROCHLORIDE [Suspect]
     Indication: MAJOR DEPRESSION
     Dosage: UNK ORAL
     Route: 048
     Dates: start: 20020301, end: 20140201
  2. LISINOPRIL [Concomitant]
  3. S-ADENOSYL-L-METHIONINE [Concomitant]
  4. VITAMIN B COMPLEX [Concomitant]
  5. VITAMIN D [Concomitant]

REACTIONS (8)
  - Depression suicidal [None]
  - Panic attack [None]
  - Anhedonia [None]
  - Nausea [None]
  - Decreased appetite [None]
  - Tremor [None]
  - Muscle twitching [None]
  - Withdrawal syndrome [None]
